FAERS Safety Report 5675163-0 (Version None)
Quarter: 2008Q2

REPORT INFORMATION
  Report Type: 
  Country: None (occurrence: None)
  Receive Date: 20080303
  Receipt Date: 20070129
  Transmission Date: 20081010
  Serious: Yes (Other)
  Sender: FDA-Public Use
  Company Number: RB-4982-2007

PATIENT
  Age: 26 Year
  Sex: Male

DRUGS (3)
  1. SUBOXONE [Suspect]
     Dosage: SUBLINGUAL, 16 MG QD SUGLINGUAL, 12 MG QD SUBLINGUAL,
     Route: 060
     Dates: start: 20070115, end: 20070129
  2. SUBOXONE [Suspect]
     Dosage: SUBLINGUAL, 16 MG QD SUGLINGUAL, 12 MG QD SUBLINGUAL,
     Route: 060
     Dates: start: 20070130, end: 20070130
  3. SUBOXONE [Suspect]
     Dosage: SUBLINGUAL, 16 MG QD SUGLINGUAL, 12 MG QD SUBLINGUAL,
     Route: 060
     Dates: start: 20070131

REACTIONS (1)
  - LIVER FUNCTION TEST ABNORMAL [None]
